FAERS Safety Report 6675265-6 (Version None)
Quarter: 2010Q2

REPORT INFORMATION
  Report Type: 
  Country: None (occurrence: None)
  Receive Date: 20100409
  Receipt Date: 20091222
  Transmission Date: 20101027
  Serious: No
  Sender: FDA-Public Use
  Company Number: A0836426A

PATIENT
  Age: 56 Year
  Sex: Female

DRUGS (3)
  1. TYKERB [Suspect]
     Indication: BREAST CANCER
     Dosage: 250MG FOUR TIMES PER DAY
     Route: 048
     Dates: start: 20091201
  2. HERCEPTIN [Concomitant]
  3. METHOTREXATE [Concomitant]

REACTIONS (5)
  - BONE PAIN [None]
  - FALL [None]
  - OEDEMA PERIPHERAL [None]
  - PAIN IN EXTREMITY [None]
  - RASH [None]
